FAERS Safety Report 4705496-3 (Version None)
Quarter: 2005Q2

REPORT INFORMATION
  Report Type: 
  Country: None (occurrence: None)
  Receive Date: 20050629
  Receipt Date: 20040712
  Transmission Date: 20051028
  Serious: Yes (Hospitalization)
  Sender: FDA-Public Use
  Company Number: 200415319US

PATIENT
  Age: 70 Year
  Sex: Female
  Weight: 45 kg

DRUGS (4)
  1. TERIPARATIDE [Suspect]
     Indication: OSTEOPOROSIS
     Dosage: 20 UG/DAY; SC
     Route: 058
     Dates: start: 20040624
  2. MULTI-VITAMIN [Concomitant]
  3. CO-Q-10 [Concomitant]
  4. L-CARNITINE [Concomitant]

REACTIONS (3)
  - DISORIENTATION [None]
  - ELECTROLYTE IMBALANCE [None]
  - SPEECH DISORDER [None]
